FAERS Safety Report 19143343 (Version 3)
Quarter: 2021Q4

REPORT INFORMATION
  Report Type: Spontaneous
  Country: IT (occurrence: IT)
  Receive Date: 20210416
  Receipt Date: 20211213
  Transmission Date: 20220303
  Serious: Yes (Other)
  Sender: FDA-Public Use
  Company Number: None

PATIENT
  Age: 55 Year

DRUGS (1)
  1. MVASI [Suspect]
     Active Substance: BEVACIZUMAB-AWWB
     Indication: Age-related macular degeneration
     Dosage: 0.5 MICROGRAM, CYCLICAL
     Route: 065
     Dates: start: 20210305, end: 20210402

REACTIONS (6)
  - Retinal haemorrhage [Recovering/Resolving]
  - Macular oedema [Recovering/Resolving]
  - Visual impairment [Recovering/Resolving]
  - Drug ineffective [Recovering/Resolving]
  - Product substitution [Recovering/Resolving]
  - Off label use [Unknown]

NARRATIVE: CASE EVENT DATE: 20210325
